FAERS Safety Report 9155930 (Version 1)
Quarter: 2013Q1

REPORT INFORMATION
  Report Type: Spontaneous
  Country: MX (occurrence: MX)
  Receive Date: 20130311
  Receipt Date: 20130311
  Transmission Date: 20140127
  Serious: Yes (Other)
  Sender: FDA-Public Use
  Company Number: PHHY2013MX023225

PATIENT
  Age: 78 Year
  Sex: Male

DRUGS (6)
  1. EXFORGE [Suspect]
     Indication: HYPERTENSION
     Dosage: 1 DF (160MG VALSARTAN/5MG AMLO), DAILY
     Route: 048
     Dates: start: 201203
  2. DILATREND [Concomitant]
     Dosage: 1 DF, DAILY
     Dates: start: 200901
  3. PENTOXIFYLLINE [Concomitant]
     Dosage: 2 DF, DAILY
     Dates: start: 201101
  4. METFORMIN [Concomitant]
     Dosage: 3 DF, DAILY
     Dates: start: 201001
  5. GLIBENCLAMIDE [Concomitant]
     Dosage: 2 DF, DAILY
     Dates: start: 200901
  6. ASPIRIN [Concomitant]
     Dosage: 1 DF, DAILY
     Dates: start: 200901

REACTIONS (2)
  - Peripheral arterial occlusive disease [Not Recovered/Not Resolved]
  - Visual impairment [Not Recovered/Not Resolved]
